FAERS Safety Report 5067929-5 (Version None)
Quarter: 2006Q3

REPORT INFORMATION
  Report Type: 
  Country: None (occurrence: None)
  Receive Date: 20060802
  Receipt Date: 20060614
  Transmission Date: 20061208
  Serious: Yes (Other)
  Sender: FDA-Public Use
  Company Number: 2006GB01009

PATIENT
  Sex: Female
  Weight: 96.6 kg

DRUGS (7)
  1. OMEPRAZOLE [Suspect]
     Indication: BARRETT'S OESOPHAGUS
     Route: 048
     Dates: start: 19950101, end: 19950101
  2. OMEPRAZOLE [Suspect]
     Indication: GASTROOESOPHAGEAL REFLUX DISEASE
     Route: 048
     Dates: start: 19950101, end: 19950101
  3. ESOMEPRAZOLE MAGNESIUM [Suspect]
     Indication: BARRETT'S OESOPHAGUS
     Route: 048
     Dates: start: 20030101, end: 20030101
  4. ESOMEPRAZOLE MAGNESIUM [Suspect]
     Indication: GASTROOESOPHAGEAL REFLUX DISEASE
     Route: 048
     Dates: start: 20030101, end: 20030101
  5. RABEPRAZOLE SODIUM [Concomitant]
  6. ACETAMINOPHEN W/ CODEINE [Concomitant]
     Indication: MUSCULOSKELETAL PAIN
     Dosage: POSSIBLY NOT ON IT AT THE TIME
  7. PANTOPRAZOLE SODIUM [Concomitant]

REACTIONS (3)
  - DYSPNOEA [None]
  - OEDEMA [None]
  - WEIGHT INCREASED [None]
